FAERS Safety Report 18160549 (Version 1)
Quarter: 2020Q3

REPORT INFORMATION
  Report Type: Spontaneous
  Country: BR (occurrence: BR)
  Receive Date: 20200818
  Receipt Date: 20200818
  Transmission Date: 20201103
  Serious: Yes (Other)
  Sender: FDA-Public Use
  Company Number: BR-CADILA HEALTHCARE LIMITED-BR-ZYDUS-054518

PATIENT

DRUGS (2)
  1. TOPIRAMATE. [Suspect]
     Active Substance: TOPIRAMATE
     Indication: MIGRAINE
     Dosage: 25 MILLIGRAM
     Route: 065
  2. TOPIRAMATE. [Interacting]
     Active Substance: TOPIRAMATE
     Dosage: 150 MILLIGRAM
     Route: 065

REACTIONS (3)
  - Insomnia [Recovered/Resolved]
  - Limb discomfort [Recovered/Resolved]
  - Restless legs syndrome [Recovered/Resolved]
